FAERS Safety Report 21077340 (Version 17)
Quarter: 2025Q3

REPORT INFORMATION
  Report Type: Report from Study
  Country: US (occurrence: US)
  Receive Date: 20220713
  Receipt Date: 20250825
  Transmission Date: 20251020
  Serious: Yes (Hospitalization, Disabling, Other)
  Sender: TAKEDA
  Company Number: US-TAKEDA-2021TUS040593

PATIENT
  Age: 45 Year
  Sex: Female

DRUGS (6)
  1. LANADELUMAB [Suspect]
     Active Substance: LANADELUMAB
     Indication: Prophylaxis
     Dosage: 300 MILLIGRAM, Q2WEEKS
  2. LANADELUMAB [Suspect]
     Active Substance: LANADELUMAB
     Indication: Hereditary angioedema
     Dosage: 300 MILLIGRAM, Q4WEEKS
  3. LANADELUMAB [Suspect]
     Active Substance: LANADELUMAB
     Dosage: UNK UNK, Q2WEEKS
  4. LANADELUMAB [Suspect]
     Active Substance: LANADELUMAB
     Dosage: 300 MILLIGRAM, Q2WEEKS
  5. ICATIBANT [Suspect]
     Active Substance: ICATIBANT ACETATE
     Indication: Hereditary angioedema
  6. ICATIBANT [Suspect]
     Active Substance: ICATIBANT ACETATE

REACTIONS (13)
  - Rheumatoid arthritis [Unknown]
  - Facial pain [Not Recovered/Not Resolved]
  - Tendonitis [Unknown]
  - Upper respiratory tract infection [Not Recovered/Not Resolved]
  - Hereditary angioedema [Recovered/Resolved]
  - Drug ineffective [Unknown]
  - Stress [Unknown]
  - COVID-19 [Unknown]
  - Fibromyalgia [Unknown]
  - Vitamin D decreased [Unknown]
  - Product distribution issue [Unknown]
  - Product dose omission issue [Unknown]
  - Death of companion [Unknown]

NARRATIVE: CASE EVENT DATE: 20210623
